FAERS Safety Report 8874213 (Version 2)
Quarter: 2012Q4

REPORT INFORMATION
  Report Type: 
  Country: US (occurrence: US)
  Receive Date: 20121031
  Receipt Date: 20121221
  Transmission Date: 20130627
  Serious: No
  Sender: FDA-Public Use
  Company Number: US-009507513-1210USA005745

PATIENT
  Sex: Female

DRUGS (10)
  1. VICTRELIS [Suspect]
     Indication: HEPATITIS C
     Dosage: 800 mg, q8h
     Route: 048
     Dates: start: 201204
  2. RIBASPHERE [Suspect]
     Indication: HEPATITIS C
  3. PEGASYS [Suspect]
     Indication: HEPATITIS C
  4. PROCRIT [Concomitant]
  5. SINGULAIR [Concomitant]
  6. DIOVAN [Concomitant]
  7. LORAZEPAM [Concomitant]
  8. ADVAIR [Concomitant]
  9. LEVOTHYROXINE SODIUM [Concomitant]
  10. ALBUTEROL [Concomitant]

REACTIONS (5)
  - Oral pain [Unknown]
  - Constipation [Unknown]
  - Nausea [Unknown]
  - Dysgeusia [Not Recovered/Not Resolved]
  - Anaemia [Unknown]
